FAERS Safety Report 19985449 (Version 2)
Quarter: 2021Q4

REPORT INFORMATION
  Report Type: Report from Study
  Country: JP (occurrence: JP)
  Receive Date: 20211021
  Receipt Date: 20211111
  Transmission Date: 20220303
  Serious: Yes (Death, Hospitalization, Other)
  Sender: FDA-Public Use
  Company Number: JP-JNJFOC-20201040891

PATIENT
  Age: 80 Year
  Sex: Female
  Weight: 33.1 kg

DRUGS (39)
  1. BORTEZOMIB [Suspect]
     Active Substance: BORTEZOMIB
     Indication: Plasma cell myeloma
     Dosage: 1.3 MILLIGRAM/SQ. METER, QD
     Route: 065
     Dates: start: 20171127, end: 20171127
  2. BORTEZOMIB [Suspect]
     Active Substance: BORTEZOMIB
     Dosage: 1.3 MILLIGRAM/SQ. METER, QD
     Route: 065
     Dates: start: 20171204, end: 20171204
  3. BORTEZOMIB [Suspect]
     Active Substance: BORTEZOMIB
     Dosage: 1.3 MILLIGRAM/SQ. METER, QD
     Route: 065
     Dates: start: 20171218, end: 20171218
  4. BORTEZOMIB [Suspect]
     Active Substance: BORTEZOMIB
     Dosage: 1.3 MILLIGRAM/SQ. METER, QD
     Route: 065
     Dates: start: 20171225, end: 20171225
  5. BORTEZOMIB [Suspect]
     Active Substance: BORTEZOMIB
     Dosage: 1.3 MILLIGRAM/SQ. METER, QD
     Route: 065
     Dates: start: 20180112, end: 20180112
  6. BORTEZOMIB [Suspect]
     Active Substance: BORTEZOMIB
     Dosage: 1.3 MILLIGRAM/SQ. METER, QD
     Route: 065
     Dates: start: 20180119, end: 20180119
  7. BORTEZOMIB [Suspect]
     Active Substance: BORTEZOMIB
     Dosage: 1.3 MILLIGRAM/SQ. METER, QD
     Route: 065
     Dates: start: 20180202, end: 20180202
  8. BORTEZOMIB [Suspect]
     Active Substance: BORTEZOMIB
     Dosage: 1.3 MILLIGRAM/SQ. METER, QD
     Route: 065
     Dates: start: 20180209, end: 20180209
  9. BORTEZOMIB [Suspect]
     Active Substance: BORTEZOMIB
     Dosage: 1.3 MILLIGRAM/SQ. METER, QD
     Route: 065
     Dates: start: 20180223, end: 20180223
  10. BORTEZOMIB [Suspect]
     Active Substance: BORTEZOMIB
     Dosage: 1.3 MILLIGRAM/SQ. METER, QD
     Route: 065
     Dates: start: 20180302, end: 20180302
  11. BORTEZOMIB [Suspect]
     Active Substance: BORTEZOMIB
     Dosage: 1.3 MILLIGRAM/SQ. METER, QD
     Route: 065
     Dates: start: 20180316, end: 20180316
  12. DARZALEX [Suspect]
     Active Substance: DARATUMUMAB
     Indication: Plasma cell myeloma
     Dosage: 18 MILLIGRAM/KILOGRAM, QD
     Route: 041
     Dates: start: 20171127, end: 20171127
  13. DARZALEX [Suspect]
     Active Substance: DARATUMUMAB
     Dosage: 18 MILLIGRAM/KILOGRAM, QD
     Route: 041
     Dates: start: 20171204, end: 20171204
  14. DARZALEX [Suspect]
     Active Substance: DARATUMUMAB
     Dosage: 18 MILLIGRAM/KILOGRAM, QD
     Route: 041
     Dates: start: 20171211, end: 20171211
  15. DARZALEX [Suspect]
     Active Substance: DARATUMUMAB
     Dosage: 18 MILLIGRAM/KILOGRAM, QD
     Route: 041
     Dates: start: 20171218, end: 20171218
  16. DARZALEX [Suspect]
     Active Substance: DARATUMUMAB
     Dosage: 18 MILLIGRAM/KILOGRAM, QD
     Route: 041
     Dates: start: 20171225, end: 20171225
  17. DARZALEX [Suspect]
     Active Substance: DARATUMUMAB
     Dosage: 18 MILLIGRAM/KILOGRAM, QD
     Route: 041
     Dates: start: 20180105, end: 20180105
  18. DARZALEX [Suspect]
     Active Substance: DARATUMUMAB
     Dosage: 18 MILLIGRAM/KILOGRAM, QD
     Route: 041
     Dates: start: 20180112, end: 20180112
  19. DARZALEX [Suspect]
     Active Substance: DARATUMUMAB
     Dosage: 18 MILLIGRAM/KILOGRAM, QD
     Route: 041
     Dates: start: 20180119, end: 20180119
  20. DARZALEX [Suspect]
     Active Substance: DARATUMUMAB
     Dosage: 18 MILLIGRAM/KILOGRAM, QD
     Route: 041
     Dates: start: 20180126, end: 20180126
  21. DARZALEX [Suspect]
     Active Substance: DARATUMUMAB
     Dosage: 18 MILLIGRAM/KILOGRAM, QD
     Route: 041
     Dates: start: 20180202, end: 20180202
  22. DARZALEX [Suspect]
     Active Substance: DARATUMUMAB
     Dosage: 18 MILLIGRAM/KILOGRAM, QD
     Route: 041
     Dates: start: 20180209, end: 20180209
  23. DARZALEX [Suspect]
     Active Substance: DARATUMUMAB
     Dosage: 16 MILLIGRAM/KILOGRAM, QD
     Route: 041
     Dates: start: 20180223, end: 20180223
  24. DARZALEX [Suspect]
     Active Substance: DARATUMUMAB
     Dosage: 16 MILLIGRAM/KILOGRAM, QD
     Route: 041
     Dates: start: 20180316, end: 20180316
  25. DEXAMETHASONE [Concomitant]
     Active Substance: DEXAMETHASONE
     Indication: Plasma cell myeloma
     Dosage: 20 MILLIGRAM, QD
     Route: 065
     Dates: start: 20171127, end: 20171128
  26. DEXAMETHASONE [Concomitant]
     Active Substance: DEXAMETHASONE
     Dosage: 20 MILLIGRAM, QD
     Route: 065
     Dates: start: 20171204, end: 20171205
  27. DEXAMETHASONE [Concomitant]
     Active Substance: DEXAMETHASONE
     Dosage: 20 MILLIGRAM, QD
     Route: 065
     Dates: start: 20171211, end: 20171212
  28. DEXAMETHASONE [Concomitant]
     Active Substance: DEXAMETHASONE
     Dosage: 20 MILLIGRAM, QD
     Route: 065
     Dates: start: 20171218, end: 20171219
  29. DEXAMETHASONE [Concomitant]
     Active Substance: DEXAMETHASONE
     Dosage: 20 MILLIGRAM, QD
     Route: 065
     Dates: start: 20171225, end: 20171226
  30. DEXAMETHASONE [Concomitant]
     Active Substance: DEXAMETHASONE
     Dosage: 20 MILLIGRAM, QD
     Route: 065
     Dates: start: 20180105, end: 20180106
  31. DEXAMETHASONE [Concomitant]
     Active Substance: DEXAMETHASONE
     Dosage: 20 MILLIGRAM, QD
     Route: 065
     Dates: start: 20180112, end: 20180113
  32. DEXAMETHASONE [Concomitant]
     Active Substance: DEXAMETHASONE
     Dosage: 20 MILLIGRAM, QD
     Route: 065
     Dates: start: 20180119, end: 20180120
  33. DEXAMETHASONE [Concomitant]
     Active Substance: DEXAMETHASONE
     Dosage: 20 MILLIGRAM, QD
     Route: 065
     Dates: start: 20180126, end: 20180127
  34. DEXAMETHASONE [Concomitant]
     Active Substance: DEXAMETHASONE
     Dosage: 20 MILLIGRAM, QD
     Route: 065
     Dates: start: 20180202, end: 20180203
  35. DEXAMETHASONE [Concomitant]
     Active Substance: DEXAMETHASONE
     Dosage: 20 MILLIGRAM, QD
     Route: 065
     Dates: start: 20180209, end: 20180210
  36. DEXAMETHASONE [Concomitant]
     Active Substance: DEXAMETHASONE
     Dosage: 20 MILLIGRAM, QD
     Route: 065
     Dates: start: 20180223, end: 20180224
  37. DEXAMETHASONE [Concomitant]
     Active Substance: DEXAMETHASONE
     Dosage: 20 MILLIGRAM, QD
     Route: 065
     Dates: start: 20180302, end: 20180303
  38. DEXAMETHASONE [Concomitant]
     Active Substance: DEXAMETHASONE
     Dosage: 20 MILLIGRAM, QD
     Route: 065
     Dates: start: 20180316, end: 20180317
  39. PLATELETS [Concomitant]
     Active Substance: HUMAN PLATELET, ALLOGENIC
     Indication: Platelet count decreased
     Dosage: 10 INTERNATIONAL UNIT, QD
     Route: 065
     Dates: start: 20180308, end: 20180324

REACTIONS (8)
  - Plasma cell myeloma [Fatal]
  - Renal impairment [Fatal]
  - Hepatic function abnormal [Unknown]
  - Infusion related reaction [Unknown]
  - Thrombocytopenia [Unknown]
  - Platelet count decreased [Not Recovered/Not Resolved]
  - Off label use [Unknown]
  - Product use issue [Unknown]

NARRATIVE: CASE EVENT DATE: 20171127
